FAERS Safety Report 6762413-2 (Version None)
Quarter: 2010Q2

REPORT INFORMATION
  Report Type: 
  Country: None (occurrence: None)
  Receive Date: 20100609
  Receipt Date: 20100601
  Transmission Date: 20101027
  Serious: Yes (Other)
  Sender: FDA-Public Use
  Company Number: DE-ROCHE-707679

PATIENT
  Age: 50 Year
  Sex: Female

DRUGS (2)
  1. AVASTIN [Suspect]
     Dosage: 2 APPLICATIONS PRIOR TO THE EVENT
     Route: 065
  2. TAXOL [Suspect]
     Route: 065

REACTIONS (1)
  - LYMPHOEDEMA [None]
